FAERS Safety Report 13136406 (Version 1)
Quarter: 2017Q1

REPORT INFORMATION
  Report Type: Spontaneous
  Country: US (occurrence: US)
  Receive Date: 20170122
  Receipt Date: 20170122
  Transmission Date: 20170428
  Serious: No
  Sender: FDA-Public Use
  Company Number: US-009507513-1612USA014588

PATIENT
  Age: 59 Year
  Sex: Male

DRUGS (2)
  1. REBETOL [Suspect]
     Active Substance: RIBAVIRIN
     Indication: HEPATITIS C
     Dosage: 3 PILLS IN THE MORNING AND 3 PILLS IN THE EVENING
     Route: 048
     Dates: start: 20160806, end: 20161206
  2. ZEPATIER [Suspect]
     Active Substance: ELBASVIR\GRAZOPREVIR
     Dosage: ONCE EVERY MORNING

REACTIONS (5)
  - Anxiety [Unknown]
  - Rash [Unknown]
  - Depression [Unknown]
  - Drug ineffective [Unknown]
  - Irritability [Unknown]

NARRATIVE: CASE EVENT DATE: 2016
